FAERS Safety Report 20934050 (Version 1)
Quarter: 2022Q2

REPORT INFORMATION
  Report Type: Spontaneous
  Country: US (occurrence: None)
  Receive Date: 20220607
  Receipt Date: 20220607
  Transmission Date: 20220721
  Serious: No
  Sender: FDA-Public Use
  Company Number: None

PATIENT
  Age: 71 Year
  Sex: Female

DRUGS (1)
  1. HUMIRA [Suspect]
     Active Substance: ADALIMUMAB
     Indication: Rheumatoid arthritis
     Dosage: OTHER FREQUENCY : EVERY 14 DAYS;?
     Route: 058
     Dates: start: 20220312

REACTIONS (6)
  - Drug delivery system malfunction [None]
  - Injection site swelling [None]
  - Injection site pain [None]
  - Intentional dose omission [None]
  - Exposure via skin contact [None]
  - Accidental exposure to product [None]

NARRATIVE: CASE EVENT DATE: 20220510
